FAERS Safety Report 21601836 (Version 1)
Quarter: 2022Q4

REPORT INFORMATION
  Report Type: Report from Study
  Country: US (occurrence: US)
  Receive Date: 20221116
  Receipt Date: 20221116
  Transmission Date: 20230113
  Serious: No
  Sender: FDA-Public Use
  Company Number: US-ABBVIE-4163410

PATIENT
  Sex: Female

DRUGS (2)
  1. HUMIRA [Suspect]
     Active Substance: ADALIMUMAB
     Indication: Crohn^s disease
     Dosage: CITRATE FREE
     Route: 058
  2. JANSSEN COVID-19 VACCINE [Concomitant]
     Active Substance: AD26.COV2.S
     Indication: COVID-19 immunisation
     Dosage: FIRST DOSE?1 IN ONCE?JOHNSON + JOHNSON
     Route: 030
     Dates: start: 20210301, end: 20210301

REACTIONS (6)
  - Influenza like illness [Not Recovered/Not Resolved]
  - Middle ear effusion [Unknown]
  - Fatigue [Unknown]
  - Pulmonary congestion [Unknown]
  - Fatigue [Recovering/Resolving]
  - Ear disorder [Unknown]
